FAERS Safety Report 7494450-7 (Version None)
Quarter: 2011Q2

REPORT INFORMATION
  Report Type: 
  Country: None (occurrence: None)
  Receive Date: 20110520
  Receipt Date: 20110511
  Transmission Date: 20111010
  Serious: Yes (Hospitalization)
  Sender: FDA-Public Use
  Company Number: JP-ROCHE-778032

PATIENT
  Sex: Female
  Weight: 45 kg

DRUGS (17)
  1. CELECOXIB [Concomitant]
     Route: 048
     Dates: start: 20101109
  2. ACTEMRA [Suspect]
     Indication: RHEUMATOID ARTHRITIS
     Route: 041
     Dates: start: 20110215, end: 20110215
  3. ALOSENN [Concomitant]
     Route: 048
     Dates: start: 19991105
  4. FLUITRAN [Concomitant]
     Route: 048
     Dates: start: 19990609
  5. RIZE [Concomitant]
     Route: 048
  6. GASMOTIN [Concomitant]
     Route: 048
     Dates: start: 20080606
  7. CEVIMELINE HYDROCHLORIDE [Concomitant]
     Route: 048
     Dates: start: 20110202
  8. RHEUMATREX [Concomitant]
     Route: 048
     Dates: start: 20000405
  9. PREDNISOLONE [Concomitant]
     Route: 048
     Dates: start: 20000330
  10. SLOW-K [Concomitant]
     Route: 048
     Dates: start: 19990203
  11. MEXITIL [Concomitant]
     Route: 048
     Dates: start: 20070416
  12. PREDNISOLONE [Concomitant]
     Route: 048
     Dates: start: 20110401
  13. HOCHU-EKKI-TO [Concomitant]
     Dosage: FORM: PERORAL LIQUID PREPARATION
     Route: 048
     Dates: start: 19991020
  14. ZOLPIDEM [Concomitant]
     Route: 048
     Dates: start: 20040305
  15. RHEUMATREX [Concomitant]
     Route: 048
     Dates: start: 20100403
  16. ACTONEL [Concomitant]
     Route: 048
     Dates: start: 20060322
  17. RABEPRAZOLE SODIUM [Concomitant]
     Route: 048
     Dates: start: 20030516

REACTIONS (1)
  - PANCREATITIS ACUTE [None]
